FAERS Safety Report 6044230-4 (Version None)
Quarter: 2009Q1

REPORT INFORMATION
  Report Type: 
  Country: None (occurrence: None)
  Receive Date: 20090114
  Receipt Date: 20090114
  Transmission Date: 20090719
  Serious: Yes (Hospitalization)
  Sender: FDA-Public Use
  Company Number: None

PATIENT
  Age: 31 Year
  Sex: Female
  Weight: 104.7809 kg

DRUGS (1)
  1. REBIF [Suspect]
     Indication: MULTIPLE SCLEROSIS
     Dosage: 44MCG/0.5ML 3 X WEEK SQ
     Route: 058

REACTIONS (3)
  - INJECTION SITE ABSCESS [None]
  - INJECTION SITE INFECTION [None]
  - PAIN IN EXTREMITY [None]
